FAERS Safety Report 8309833-2 (Version None)
Quarter: 2012Q2

REPORT INFORMATION
  Report Type: 
  Country: None (occurrence: None)
  Receive Date: 20120425
  Receipt Date: 20120423
  Transmission Date: 20120825
  Serious: Yes (Death)
  Sender: FDA-Public Use
  Company Number: PHHY2012NL034646

PATIENT
  Sex: Male

DRUGS (3)
  1. ZOMETA [Suspect]
     Dosage: 4 MG/100 ML SOLUTION FOR IV INFUSION 1X PER 21 DAYS
     Route: 042
     Dates: start: 20120308
  2. ZOMETA [Suspect]
     Indication: METASTASIS
     Dosage: 4 MG/100 ML SOLUTION FOR IV INFUSION 1X PER 21 DAYS
     Route: 042
  3. ZOMETA [Suspect]
     Dosage: 4 MG/100 ML SOLUTION FOR IV INFUSION 1X PER 21 DAYS
     Route: 042
     Dates: start: 20120328

REACTIONS (1)
  - EUTHANASIA [None]
